FAERS Safety Report 8256396 (Version 2)
Quarter: 2012Q4

REPORT INFORMATION
  Report Type: Report from Study
  Country: SE (occurrence: SE)
  Receive Date: 20111121
  Receipt Date: 20120904
  Transmission Date: 20130627
  Serious: Yes (Hospitalization, Other)
  Sender: FDA-Public Use
  Company Number: SE-ASTRAZENECA-2011SE61430

PATIENT
  Age: 19844 Day
  Sex: Female

DRUGS (1)
  1. AZD6474 [Suspect]
     Indication: THYROID CANCER
     Route: 048
     Dates: start: 20090406

REACTIONS (2)
  - Gastric cancer [Not Recovered/Not Resolved]
  - Ileus [Recovered/Resolved]
